FAERS Safety Report 8564517-0 (Version None)
Quarter: 2012Q3

REPORT INFORMATION
  Report Type: 
  Country: None (occurrence: None)
  Receive Date: 20120803
  Receipt Date: 20120723
  Transmission Date: 20120928
  Serious: Yes (Hospitalization, Other)
  Sender: FDA-Public Use
  Company Number: US-009507513-1107USA01259

PATIENT

DRUGS (14)
  1. FOSAMAX [Suspect]
     Indication: OSTEOPOROSIS
     Dosage: 10 MG, UNK
     Route: 048
     Dates: start: 19950101, end: 20080530
  2. DYAZIDE [Concomitant]
     Indication: HYPERTENSION
     Dosage: 37.5/25 MG
     Route: 048
     Dates: start: 20000101
  3. FOSAMAX [Suspect]
     Dosage: 70 MG, QW
     Route: 048
     Dates: start: 20020916, end: 20100801
  4. FOSAMAX [Suspect]
     Dosage: 70 MG, QW
     Route: 048
     Dates: start: 19950101, end: 20011008
  5. CALCIUM (UNSPECIFIED) [Concomitant]
     Dosage: 600 MG, UNK
     Dates: start: 19800101
  6. BONIVA [Suspect]
     Dosage: 150 MG, QM
     Dates: start: 20080530
  7. PRINIVIL [Concomitant]
     Indication: HYPERTENSION
     Route: 048
     Dates: start: 20000101
  8. BONIVA [Suspect]
     Dosage: UNK UNK, QW
     Dates: start: 20101001
  9. PRAVASTATIN SODIUM [Concomitant]
     Indication: BLOOD CHOLESTEROL
     Dosage: 40 MG, QD
     Route: 048
     Dates: start: 20080101
  10. MK-9278 [Concomitant]
     Dates: start: 19800101
  11. OMEGA-3 MARINE TRIGLYCERIDES [Concomitant]
     Dosage: 100-1000 IU
     Dates: start: 19800101
  12. CHOLECALCIFEROL [Concomitant]
     Dosage: 400-1000 IU
     Dates: start: 19800101
  13. PRILOSEC [Concomitant]
     Dosage: 20-40 MG
     Route: 048
     Dates: start: 20101021
  14. FOSAMAX [Suspect]
     Dosage: 10 MG, UNK
     Route: 048
     Dates: end: 20100801

REACTIONS (35)
  - CATARACT [None]
  - DRUG INTOLERANCE [None]
  - OSTEOPENIA [None]
  - COUGH [None]
  - CATARACT OPERATION [None]
  - ASTHENIA [None]
  - URTICARIA [None]
  - ATROPHIC VULVOVAGINITIS [None]
  - ARTHRALGIA [None]
  - PAIN IN EXTREMITY [None]
  - CONSTIPATION [None]
  - ACTIVITIES OF DAILY LIVING IMPAIRED [None]
  - INTERVERTEBRAL DISC PROTRUSION [None]
  - MUSCLE SPASMS [None]
  - URINARY TRACT INFECTION [None]
  - FACET JOINT SYNDROME [None]
  - BLOOD GLUCOSE INCREASED [None]
  - HAEMORRHAGIC ANAEMIA [None]
  - GAIT DISTURBANCE [None]
  - FEMUR FRACTURE [None]
  - SPINAL COLUMN STENOSIS [None]
  - HAEMORRHOIDS [None]
  - ACUTE SINUSITIS [None]
  - LOW DENSITY LIPOPROTEIN INCREASED [None]
  - OROPHARYNGEAL PAIN [None]
  - DIVERTICULUM [None]
  - ARTHRITIS [None]
  - ANAEMIA OF CHRONIC DISEASE [None]
  - TACHYPNOEA [None]
  - PAIN [None]
  - BURNS SECOND DEGREE [None]
  - AMNESIA [None]
  - HYPERTENSION [None]
  - THERMAL BURN [None]
  - OEDEMA PERIPHERAL [None]
